FAERS Safety Report 11542903 (Version 1)
Quarter: 2015Q3

REPORT INFORMATION
  Report Type: Spontaneous
  Country: US (occurrence: US)
  Receive Date: 20150903
  Receipt Date: 20150903
  Transmission Date: 20151125
  Serious: No
  Sender: FDA-Public Use
  Company Number: US-ELI_LILLY_AND_COMPANY-US201106001795

PATIENT
  Sex: Male

DRUGS (2)
  1. REGLAN [Concomitant]
     Active Substance: METOCLOPRAMIDE HYDROCHLORIDE
     Indication: ABDOMINAL DISCOMFORT
     Dosage: UNK
  2. HUMALOG MIX75/25 [Suspect]
     Active Substance: INSULIN LISPRO
     Indication: DIABETES MELLITUS
     Dosage: 10 U, OTHER
     Dates: start: 20110605

REACTIONS (1)
  - Abdominal pain upper [Unknown]

NARRATIVE: CASE EVENT DATE: 20110606
